FAERS Safety Report 6039979-3 (Version None)
Quarter: 2009Q1

REPORT INFORMATION
  Report Type: 
  Country: None (occurrence: None)
  Receive Date: 20090116
  Receipt Date: 20071107
  Transmission Date: 20090719
  Serious: No
  Sender: FDA-Public Use
  Company Number: US-BRISTOL-MYERS SQUIBB COMPANY-13972328

PATIENT
  Age: 51 Year
  Sex: Female

DRUGS (9)
  1. ABILIFY [Suspect]
  2. JANUVIA [Concomitant]
  3. LISINOPRIL [Concomitant]
  4. RAZADYNE [Concomitant]
  5. RISPERDAL [Concomitant]
  6. PERPHENAZINE [Concomitant]
  7. METFORMIN HCL [Concomitant]
  8. PROZAC [Concomitant]
  9. TRIHEXYPHENIDYL [Concomitant]

REACTIONS (3)
  - COMMUNICATION DISORDER [None]
  - MUSCULAR WEAKNESS [None]
  - SOCIAL AVOIDANT BEHAVIOUR [None]
